FAERS Safety Report 6329132-8 (Version None)
Quarter: 2009Q3

REPORT INFORMATION
  Report Type: 
  Country: None (occurrence: None)
  Receive Date: 20090826
  Receipt Date: 20090818
  Transmission Date: 20100115
  Serious: Yes (Hospitalization)
  Sender: FDA-Public Use
  Company Number: CA-ROCHE-651098

PATIENT
  Sex: Male

DRUGS (5)
  1. TAMIFLU [Suspect]
     Indication: INFLUENZA
     Route: 048
     Dates: start: 20090814, end: 20090817
  2. SINGULAIR [Concomitant]
     Indication: ASTHMA
     Dosage: DRUG REPORTED: SINGULAIR TABLETS
     Route: 048
  3. ADVAIR DISKUS 100/50 [Concomitant]
     Indication: ASTHMA
     Dosage: DOSE: 1 PUFF; ROUTE: INHALED; DRUG REPORTED: ADVAIR DISKUS 100/50
     Route: 055
  4. VENTOLIN [Concomitant]
     Indication: ASTHMA
     Dosage: ROUTE: INHALED; FREQUENCY: PRN (AS NEEDED); DRUG REPORTED: VENTOLIN INHALER
  5. NASACORT [Concomitant]
     Dosage: ROUTE: NASALLY; DRUG REPORTED: NASOCORT SPRAY
     Dates: start: 20090401

REACTIONS (1)
  - SUPRAVENTRICULAR TACHYCARDIA [None]
